FAERS Safety Report 11538030 (Version 1)
Quarter: 2015Q3

REPORT INFORMATION
  Report Type: Other
  Country: US (occurrence: US)
  Receive Date: 20150922
  Receipt Date: 20150922
  Transmission Date: 20151125
  Serious: Yes (Hospitalization)
  Sender: FDA-Public Use
  Company Number: US-NSR_02249_2015

PATIENT
  Age: 13 Month
  Sex: Male

DRUGS (1)
  1. PROPRANOLOL [Suspect]
     Active Substance: PROPRANOLOL\PROPRANOLOL HYDROCHLORIDE
     Indication: LONG QT SYNDROME
     Dosage: 3.8 MG/KG/D

REACTIONS (4)
  - Hypotonia [Recovered/Resolved]
  - Product use issue [Unknown]
  - Hypoglycaemia [Recovered/Resolved]
  - Off label use [Unknown]
